FAERS Safety Report 6264563-6 (Version None)
Quarter: 2009Q3

REPORT INFORMATION
  Report Type: 
  Country: None (occurrence: None)
  Receive Date: 20090708
  Receipt Date: 20090626
  Transmission Date: 20100115
  Serious: Yes (Hospitalization, Other)
  Sender: FDA-Public Use
  Company Number: 2005JP000753

PATIENT
  Age: 74 Year
  Sex: Male
  Weight: 50 kg

DRUGS (16)
  1. PROTOPIC [Suspect]
     Indication: DERMATITIS ATOPIC
     Dosage: 0.1%, TOPICAL
     Route: 061
     Dates: end: 20050329
  2. PROTOPIC [Suspect]
     Indication: DERMATITIS ATOPIC
     Dosage: 0.1%, TOPICAL
     Route: 061
     Dates: end: 20090313
  3. PROTOPIC [Suspect]
     Indication: DERMATITIS ATOPIC
     Dosage: 0.1%, TOPICAL
     Route: 061
     Dates: start: 20020626
  4. CEFACLOR [Concomitant]
  5. SOLON (SOFALCONE) [Concomitant]
  6. LOCOID [Concomitant]
  7. GENTAMICIN SULFATE [Concomitant]
  8. BLEOMYCIN SULFATE [Concomitant]
  9. FUCIDIN LEO (FUSIDATE SODIUM) [Concomitant]
  10. ALLEGRA [Concomitant]
  11. PASTARON (GLYCYRRHIZIC ACID DIPOTASSIUM, TOCOPHERYL ACETATE) [Concomitant]
  12. PROPADERM [Concomitant]
  13. EURAX [Concomitant]
  14. PANDEL (HYDROCORTISONE PROBUTAT) [Concomitant]
  15. ATOLANT (NETICONAZOLE HYDROCHLORIDE) [Concomitant]
  16. MYSER (DIFLUPREDNATE) [Concomitant]

REACTIONS (5)
  - ACTINIC KERATOSIS [None]
  - ANAPLASTIC LARGE CELL LYMPHOMA T- AND NULL-CELL TYPES [None]
  - POST PROCEDURAL COMPLICATION [None]
  - SCAR [None]
  - SQUAMOUS CELL CARCINOMA [None]
